FAERS Safety Report 14139360 (Version 1)
Quarter: 2017Q4

REPORT INFORMATION
  Report Type: Spontaneous
  Country: IT (occurrence: IT)
  Receive Date: 20171028
  Receipt Date: 20171028
  Transmission Date: 20180321
  Serious: Yes (Other)
  Sender: FDA-Public Use
  Company Number: IT-AUROBINDO-AUR-APL-2017-41020

PATIENT
  Age: 69 Year
  Sex: Female

DRUGS (1)
  1. LEVOFLOXACIN. [Suspect]
     Active Substance: LEVOFLOXACIN
     Indication: RESPIRATORY TRACT INFECTION
     Dosage: UNK, DAILY
     Route: 048
     Dates: start: 20160926, end: 20161003

REACTIONS (6)
  - Oropharyngeal pain [Recovering/Resolving]
  - Stomatitis [Recovering/Resolving]
  - Dysphagia [Recovering/Resolving]
  - Palmar erythema [Recovering/Resolving]
  - Odynophagia [Recovering/Resolving]
  - Aphthous ulcer [Recovering/Resolving]

NARRATIVE: CASE EVENT DATE: 20161001
